FAERS Safety Report 7494075-3 (Version None)
Quarter: 2011Q2

REPORT INFORMATION
  Report Type: 
  Country: None (occurrence: None)
  Receive Date: 20110520
  Receipt Date: 20110512
  Transmission Date: 20111010
  Serious: Yes (Other)
  Sender: FDA-Public Use
  Company Number: JP-PFIZER INC-2011108168

PATIENT
  Age: 60 Year
  Sex: Female

DRUGS (2)
  1. LIPITOR [Suspect]
     Dosage: 5 MG, 1X/DAY
     Route: 048
     Dates: start: 20010701
  2. MEVALOTIN [Concomitant]
     Dosage: UNK
     Route: 048
     Dates: start: 19951001, end: 20010701

REACTIONS (1)
  - PLATELET COUNT DECREASED [None]
